FAERS Safety Report 9813113 (Version 1)
Quarter: 2014Q1

REPORT INFORMATION
  Report Type: Spontaneous
  Country: GR (occurrence: None)
  Receive Date: 20140109
  Receipt Date: 20140109
  Transmission Date: 20141002
  Serious: Yes (Life-Threatening, Hospitalization)
  Sender: FDA-Public Use
  Company Number: DAV-AE-MTX-13-66

PATIENT
  Age: 64 Year
  Sex: Male

DRUGS (5)
  1. METHOTREXATE [Suspect]
     Indication: PSORIASIS
     Route: 042
  2. INFLIXIMAB [Concomitant]
  3. CYCLOSPORINE [Concomitant]
  4. UNSPECIFIED CORTICOSTEROID [Concomitant]
  5. MIRTAZAPINE [Concomitant]

REACTIONS (7)
  - Respiratory failure [None]
  - Interstitial lung disease [None]
  - Cardiac failure [None]
  - Pyrexia [None]
  - Drug ineffective [None]
  - Jugular vein distension [None]
  - C-reactive protein increased [None]
